FAERS Safety Report 11610269 (Version 1)
Quarter: 2015Q4

REPORT INFORMATION
  Report Type: Spontaneous
  Country: US (occurrence: US)
  Receive Date: 20151008
  Receipt Date: 20151008
  Transmission Date: 20160304
  Serious: No
  Sender: FDA-Public Use
  Company Number: US-009507513-1509USA014660

PATIENT
  Age: 19 Year
  Sex: Female
  Weight: 47.62 kg

DRUGS (1)
  1. NEXPLANON [Suspect]
     Active Substance: ETONOGESTREL
     Indication: CONTRACEPTION
     Dosage: EVERY 3 YEARS IN RIGHT ARM
     Route: 059
     Dates: start: 20150315

REACTIONS (2)
  - Implant site pain [Unknown]
  - Implant site induration [Unknown]

NARRATIVE: CASE EVENT DATE: 201508
